FAERS Safety Report 14389905 (Version 1)
Quarter: 2018Q1

REPORT INFORMATION
  Report Type: Spontaneous
  Country: FR (occurrence: FR)
  Receive Date: 20180115
  Receipt Date: 20180115
  Transmission Date: 20180509
  Serious: Yes (Disabling)
  Sender: FDA-Public Use
  Company Number: FR-009507513-1801FRA003662

PATIENT
  Age: 64 Year
  Sex: Male
  Weight: 73 kg

DRUGS (2)
  1. ATORVASTATIN CALCIUM. [Suspect]
     Active Substance: ATORVASTATIN CALCIUM
     Indication: PROPHYLAXIS
     Dosage: UNK
     Route: 048
     Dates: start: 20170725
  2. EZETROL [Suspect]
     Active Substance: EZETIMIBE
     Indication: PROPHYLAXIS
     Route: 048
     Dates: start: 20170725, end: 20171203

REACTIONS (2)
  - Myalgia [Recovering/Resolving]
  - Insomnia [Not Recovered/Not Resolved]

NARRATIVE: CASE EVENT DATE: 201710
